FAERS Safety Report 9395585 (Version 2)
Quarter: 2013Q3

REPORT INFORMATION
  Report Type: Spontaneous
  Country: IT (occurrence: IT)
  Receive Date: 20130711
  Receipt Date: 20130906
  Transmission Date: 20140515
  Serious: Yes (Hospitalization)
  Sender: FDA-Public Use
  Company Number: PHHY2013IT072569

PATIENT
  Sex: Male

DRUGS (7)
  1. FUROSEMIDE [Suspect]
     Indication: CARDIAC FAILURE
     Dosage: 150 MG, QD
     Route: 048
     Dates: start: 20110101, end: 20130513
  2. ZAROXOLYN [Suspect]
     Indication: OLIGURIA
     Dosage: 5 MG, QW
     Route: 048
     Dates: start: 20130503, end: 20130511
  3. CARDIOASPIRIN [Concomitant]
     Dosage: 100 MG, UNK
  4. ENALAPRIL [Concomitant]
  5. CARVEDILOL [Concomitant]
  6. AMIODARONE [Concomitant]
  7. DIGOXIN [Concomitant]

REACTIONS (2)
  - Hypokalaemia [Recovering/Resolving]
  - Asthenia [Recovering/Resolving]
